FAERS Safety Report 8170469-8 (Version None)
Quarter: 2012Q1

REPORT INFORMATION
  Report Type: 
  Country: None (occurrence: None)
  Receive Date: 20120110
  Receipt Date: 20110809
  Transmission Date: 20120608
  Serious: Yes (Other)
  Sender: FDA-Public Use
  Company Number: M-11-022

PATIENT
  Age: 48 Year
  Sex: Female

DRUGS (2)
  1. DIFFERIN [Concomitant]
  2. DOXYCYCLINE [Suspect]
     Dosage: ORAL (047)
     Route: 048

REACTIONS (5)
  - PRURITUS [None]
  - RASH [None]
  - EYE SWELLING [None]
  - ERYTHEMA [None]
  - BURNING SENSATION [None]
